FAERS Safety Report 5263512-7 (Version None)
Quarter: 2007Q1

REPORT INFORMATION
  Report Type: 
  Country: None (occurrence: None)
  Receive Date: 20070313
  Receipt Date: 20070307
  Transmission Date: 20070707
  Serious: Yes (Congenital Anomaly)
  Sender: FDA-Public Use
  Company Number: US-AVENTIS-200612374US

PATIENT
  Sex: Male

DRUGS (1)
  1. NASACORT AQ [Suspect]
     Dosage: DOSE: UNK
     Route: 064
     Dates: start: 20060101, end: 20060303

REACTIONS (2)
  - DRUG EXPOSURE DURING PREGNANCY [None]
  - HYDRONEPHROSIS [None]
